FAERS Safety Report 10815226 (Version 1)
Quarter: 2015Q1

REPORT INFORMATION
  Report Type: Spontaneous
  Country: US (occurrence: US)
  Receive Date: 20150218
  Receipt Date: 20150218
  Transmission Date: 20150721
  Serious: No
  Sender: FDA-Public Use
  Company Number: US-RECKITT BENCKISER PHARMACEUTICAL, INC-RB-70629-2014

PATIENT
  Sex: Female
  Weight: 45.35 kg

DRUGS (4)
  1. BUPRENORPHINE GENERIC TAB [Suspect]
     Active Substance: BUPRENORPHINE
     Dosage: 16 MG, QD
     Route: 060
     Dates: start: 201407
  2. SUBOXONE [Suspect]
     Active Substance: BUPRENORPHINE HYDROCHLORIDE\NALOXONE HYDROCHLORIDE
     Indication: DRUG DEPENDENCE
     Dosage: 24 MG, QD
     Route: 060
  3. SUBOXONE [Suspect]
     Active Substance: BUPRENORPHINE HYDROCHLORIDE\NALOXONE HYDROCHLORIDE
     Indication: DRUG DEPENDENCE
     Dosage: 24 MG, QD
     Route: 060
     Dates: end: 201311
  4. BUPRENORPHINE GENERIC TAB [Suspect]
     Active Substance: BUPRENORPHINE
     Indication: DRUG DEPENDENCE
     Dosage: 24 MG, QD
     Route: 060
     Dates: start: 201311, end: 201407

REACTIONS (5)
  - Staphylococcal infection [Recovered/Resolved]
  - Fibromyalgia [Not Recovered/Not Resolved]
  - Cholelithiasis [Recovered/Resolved]
  - Therapeutic response unexpected [Not Recovered/Not Resolved]
  - Hiatus hernia [Recovered/Resolved]

NARRATIVE: CASE EVENT DATE: 2009
